FAERS Safety Report 23090757 (Version 1)
Quarter: 2023Q4

REPORT INFORMATION
  Report Type: Spontaneous
  Country: CN (occurrence: CN)
  Receive Date: 20231020
  Receipt Date: 20231020
  Transmission Date: 20240109
  Serious: Yes (Other)
  Sender: FDA-Public Use
  Company Number: CN-SUN PHARMACEUTICAL INDUSTRIES LTD-2023R1-413841

PATIENT
  Age: 25 Year
  Sex: Female

DRUGS (5)
  1. BETAMETHASONE [Suspect]
     Active Substance: BETAMETHASONE
     Indication: Cytotoxic lesions of corpus callosum
     Dosage: 8 MILLIGRAM, DAILY
     Route: 065
  2. LANSOPRAZOLE [Suspect]
     Active Substance: LANSOPRAZOLE
     Indication: Cytotoxic lesions of corpus callosum
     Dosage: 30 MILLIGRAM, BID
     Route: 065
  3. TORSEMIDE [Suspect]
     Active Substance: TORSEMIDE
     Indication: Cytotoxic lesions of corpus callosum
     Dosage: 20 MILLIGRAM, BID
     Route: 065
  4. ALANYL GLUTAMINE [Suspect]
     Active Substance: ALANYL GLUTAMINE
     Indication: Cytotoxic lesions of corpus callosum
     Dosage: 10 GRAM, DAILY
     Route: 065
  5. GLUTATHIONE [Suspect]
     Active Substance: GLUTATHIONE
     Indication: Product used for unknown indication
     Dosage: 1.8 GRAM, DAILY
     Route: 065

REACTIONS (1)
  - Cytotoxic lesions of corpus callosum [Recovering/Resolving]
